FAERS Safety Report 9406366 (Version 12)
Quarter: 2014Q2

REPORT INFORMATION
  Report Type: Spontaneous
  Country: US (occurrence: US)
  Receive Date: 20130718
  Receipt Date: 20140401
  Transmission Date: 20141212
  Serious: Yes (Other)
  Sender: FDA-Public Use
  Company Number: US-ASTRAZENECA-2013SE52481

PATIENT
  Age: 49 Year
  Sex: Female
  Weight: 108.9 kg

DRUGS (36)
  1. SEROQUEL [Suspect]
     Indication: BIPOLAR DISORDER
     Route: 048
  2. SEROQUEL [Suspect]
     Indication: BIPOLAR DISORDER
     Route: 048
     Dates: start: 2007
  3. SEROQUEL [Suspect]
     Indication: BIPOLAR DISORDER
     Route: 048
     Dates: start: 20080509, end: 20110511
  4. SEROQUEL [Suspect]
     Indication: BIPOLAR DISORDER
     Route: 048
     Dates: start: 20080509
  5. SEROQUEL [Suspect]
     Indication: BIPOLAR DISORDER
     Route: 048
     Dates: start: 20090508
  6. SEROQUEL [Suspect]
     Indication: BIPOLAR DISORDER
     Route: 048
     Dates: start: 20100831
  7. SEROQUEL [Suspect]
     Indication: BIPOLAR DISORDER
     Route: 048
     Dates: start: 20101119
  8. ALPRAZOLAM/XANAX [Concomitant]
     Dosage: 4-5 PER DAY SOMETIMES MORE
  9. ALPRAZOLAM/XANAX [Concomitant]
  10. CLONAZEPAM [Concomitant]
     Dosage: 1 MG TWICE A DAY
  11. WELLBUTRIN [Concomitant]
     Dates: start: 20101228
  12. GABAPENTIN [Concomitant]
     Dosage: 600 MILLIGRAMS 3 TIMES PER DAY
  13. PROMETHAZINE WITH CODEINE [Concomitant]
     Dosage: 1 OR 2 TEASPOONS EVERY 6 HOURS
  14. MORPHINE ER [Concomitant]
     Dosage: 30MG TWICE A DAY
     Dates: start: 20101228
  15. JANUVIA [Concomitant]
     Route: 048
  16. AMARYL [Concomitant]
  17. BUDEPRION XL [Concomitant]
     Dates: start: 20080508
  18. BUDEPRION XL [Concomitant]
     Dates: start: 20080508
  19. TIZANIDINE [Concomitant]
     Dosage: 4 MG TAKE 1 OR 2 TABLETS 3 TIMES DAILY
     Dates: start: 20080508
  20. TIZANIDINE [Concomitant]
     Dosage: 4 MG 2 THREE TIMES A DAY
     Dates: start: 20090508
  21. LEVOXYL [Concomitant]
     Dates: start: 20080509
  22. LORAZEPAM [Concomitant]
     Indication: ANXIETY
     Dosage: 0.5 MG TAKE I OR 2 TABLETS ONCE DAILY
     Dates: start: 20080509
  23. HYDROC B AND AC [Concomitant]
     Dosage: 10 MG-325 MG TAKE 1 TABLET EVERY 6 HOURS
     Dates: start: 20080509
  24. HYDROC B AND AC [Concomitant]
     Dosage: 10/325 ONE EVERY 6 HOURS PROBIOTIC 2 PER DAY
     Dates: start: 20090508
  25. LEVOTHYROXINE [Concomitant]
     Dates: start: 20090508
  26. LEVOTHYROXINE [Concomitant]
     Dates: start: 20110107
  27. LISINOPRIL [Concomitant]
     Dates: start: 20090508
  28. ROZEREM [Concomitant]
     Dates: start: 20131028
  29. ZOLPIDEM [Concomitant]
     Dates: start: 20130906
  30. CLONIDINE [Concomitant]
     Dates: start: 20130211
  31. RISPERIDONE [Concomitant]
     Dates: start: 20130331
  32. OMEGA [Concomitant]
  33. PERCOCET [Concomitant]
     Route: 048
     Dates: start: 20091112
  34. PROPOXYPHENE [Concomitant]
     Dates: start: 20070108
  35. METHYLPREDNISOLONE [Concomitant]
     Dates: start: 20070508
  36. OMEPRAZOLE [Concomitant]
     Dates: start: 20130308

REACTIONS (8)
  - Convulsion [Unknown]
  - Blood pressure increased [Unknown]
  - Type 2 diabetes mellitus [Unknown]
  - Hypertension [Unknown]
  - Bipolar disorder [Unknown]
  - Obesity [Unknown]
  - Bipolar I disorder [Unknown]
  - Weight increased [Unknown]
